FAERS Safety Report 6926278-8 (Version None)
Quarter: 2010Q3

REPORT INFORMATION
  Report Type: 
  Country: None (occurrence: None)
  Receive Date: 20100816
  Receipt Date: 20100816
  Transmission Date: 20110219
  Serious: Yes (Other)
  Sender: FDA-Public Use
  Company Number: None

PATIENT
  Age: 43 Year
  Sex: Female
  Weight: 49.8957 kg

DRUGS (2)
  1. GABAPENTIN [Suspect]
     Indication: TINNITUS
     Dosage: 1/2 PILL 3 TIMES A DAY PO
     Route: 048
     Dates: start: 20100416, end: 20100726
  2. GABAPENTIN [Suspect]
     Indication: BACK PAIN
     Dosage: 1/2 PILL 3 TIMES A DAY PO
     Route: 048
     Dates: start: 20100728, end: 20100812

REACTIONS (7)
  - AMNESIA [None]
  - BALANCE DISORDER [None]
  - OEDEMA PERIPHERAL [None]
  - PAIN [None]
  - TINNITUS [None]
  - VISUAL IMPAIRMENT [None]
  - WEIGHT INCREASED [None]
